FAERS Safety Report 16350271 (Version 1)
Quarter: 2019Q2

REPORT INFORMATION
  Report Type: Spontaneous
  Country: ES (occurrence: ES)
  Receive Date: 20190524
  Receipt Date: 20190524
  Transmission Date: 20190711
  Serious: Yes (Disabling)
  Sender: FDA-Public Use
  Company Number: ES-ABBVIE-19K-144-2795153-00

PATIENT
  Sex: Female
  Weight: 48 kg

DRUGS (4)
  1. PENTASA [Suspect]
     Active Substance: MESALAMINE
     Indication: COLITIS ULCERATIVE
     Dosage: FOUR ENVELOPES A DAY
     Route: 048
     Dates: start: 20111124
  2. HUMIRA [Suspect]
     Active Substance: ADALIMUMAB
     Route: 058
  3. HUMIRA [Suspect]
     Active Substance: ADALIMUMAB
     Indication: COLITIS ULCERATIVE
     Route: 058
     Dates: start: 20160915
  4. ZOLPIDEM STADA [Suspect]
     Active Substance: ZOLPIDEM TARTRATE
     Indication: INSOMNIA
     Dosage: EVERY NIGHT (MIDDLE PILLS TIMES)
     Route: 048
     Dates: start: 20130601

REACTIONS (10)
  - Chills [Unknown]
  - White blood cell count decreased [Unknown]
  - Lymphadenopathy [Unknown]
  - Fatigue [Not Recovered/Not Resolved]
  - Abnormal loss of weight [Unknown]
  - Arthralgia [Unknown]
  - Decreased appetite [Unknown]
  - Asthenia [Not Recovered/Not Resolved]
  - Nausea [Unknown]
  - Diarrhoea [Unknown]

NARRATIVE: CASE EVENT DATE: 20180913
